FAERS Safety Report 17917983 (Version 1)
Quarter: 2020Q2

REPORT INFORMATION
  Report Type: Spontaneous
  Country: JP (occurrence: JP)
  Receive Date: 20200619
  Receipt Date: 20200619
  Transmission Date: 20200714
  Serious: Yes (Death, Other)
  Sender: FDA-Public Use
  Company Number: JP-GILEAD-2020-0473218

PATIENT
  Age: 1 Month
  Sex: Male
  Weight: 3.94 kg

DRUGS (14)
  1. FLOLAN [Suspect]
     Active Substance: EPOPROSTENOL SODIUM
     Dosage: 10.9 NG/KG
     Route: 041
  2. OLPRINONE HYDROCHLORIDE HYDRATE [Concomitant]
     Dosage: UNK
  3. AMBRISENTAN [Suspect]
     Active Substance: AMBRISENTAN
     Indication: PULMONARY ARTERIAL HYPERTENSION
     Dosage: 0.1 MG/KG, QD
     Route: 048
  4. DOBUTAMINE [Concomitant]
     Active Substance: DOBUTAMINE HYDROCHLORIDE
     Dosage: UNK
  5. FLOLAN [Suspect]
     Active Substance: EPOPROSTENOL SODIUM
     Dosage: UNK, NG/KG
     Route: 041
  6. FLOLAN [Suspect]
     Active Substance: EPOPROSTENOL SODIUM
     Indication: PULMONARY HYPERTENSION
     Dosage: 2 NG/KG
     Route: 041
  7. FLOLAN [Suspect]
     Active Substance: EPOPROSTENOL SODIUM
     Dosage: UNK, NG/KG
     Route: 041
  8. SPIRONOLACTONE. [Concomitant]
     Active Substance: SPIRONOLACTONE
     Dosage: 1 MG/KG, QD
     Route: 048
  9. DOPAMIN [Concomitant]
     Dosage: UNK
  10. FLOLAN [Suspect]
     Active Substance: EPOPROSTENOL SODIUM
     Dosage: 24.3 NG/KG/MIN
     Route: 041
  11. FUROSEMIDE. [Concomitant]
     Active Substance: FUROSEMIDE
     Dosage: 1 MG/KG, QD
     Route: 048
  12. SILDENAFIL CITRATE. [Suspect]
     Active Substance: SILDENAFIL CITRATE
     Indication: PULMONARY ARTERIAL HYPERTENSION
     Dosage: 1 MG/KG, QD
     Route: 048
  13. TADALAFIL. [Suspect]
     Active Substance: TADALAFIL
     Indication: PULMONARY ARTERIAL HYPERTENSION
     Dosage: 1 MG/KG, QD
     Route: 048
  14. NITRIC OXIDE. [Concomitant]
     Active Substance: NITRIC OXIDE
     Indication: PULMONARY HYPERTENSION
     Dosage: UNK
     Route: 055

REACTIONS (11)
  - Pulmonary veno-occlusive disease [Unknown]
  - Ventricular enlargement [Fatal]
  - Atrial enlargement [Fatal]
  - Pulmonary hypertension [Fatal]
  - Pulmonary oedema [Unknown]
  - Product use issue [Unknown]
  - Pulmonary capillary haemangiomatosis [Unknown]
  - Respiratory disorder [Recovered/Resolved]
  - Pulmonary arterial hypertension [Unknown]
  - Right ventricular failure [Fatal]
  - Oedema [Unknown]
